FAERS Safety Report 10251847 (Version 1)
Quarter: 2014Q2

REPORT INFORMATION
  Report Type: Spontaneous
  Country: BR (occurrence: BR)
  Receive Date: 20140623
  Receipt Date: 20140623
  Transmission Date: 20141212
  Serious: Yes (Other)
  Sender: FDA-Public Use
  Company Number: BR-SHIRE-BR201403130

PATIENT
  Age: 9 Year
  Sex: Male
  Weight: 33.9 kg

DRUGS (1)
  1. ELAPRASE [Suspect]
     Indication: MUCOPOLYSACCHARIDOSIS II
     Dosage: 0.5 MG/KG, UNKNOWN
     Route: 041
     Dates: start: 20110525

REACTIONS (2)
  - Hyperthermia [Recovered/Resolved]
  - Infusion related reaction [Recovered/Resolved]
